FAERS Safety Report 7372897-7 (Version None)
Quarter: 2011Q1

REPORT INFORMATION
  Report Type: 
  Country: None (occurrence: None)
  Receive Date: 20110324
  Receipt Date: 20110316
  Transmission Date: 20110831
  Serious: Yes (Other)
  Sender: FDA-Public Use
  Company Number: US-PFIZER INC-2011059165

PATIENT
  Sex: Female

DRUGS (2)
  1. ZYVOX [Suspect]
     Dosage: UNK
  2. LEVAQUIN [Suspect]
     Dosage: UNK

REACTIONS (5)
  - ABNORMAL DREAMS [None]
  - FATIGUE [None]
  - SOMNOLENCE [None]
  - PARANOIA [None]
  - EMOTIONAL DISORDER [None]
